FAERS Safety Report 4743416-6 (Version None)
Quarter: 2005Q3

REPORT INFORMATION
  Report Type: 
  Country: None (occurrence: None)
  Receive Date: 20050812
  Receipt Date: 20050804
  Transmission Date: 20060218
  Serious: No
  Sender: FDA-Public Use
  Company Number: GB-BOEHRINGER INGELHEIM PHARMACEUTICALS, INC.-2005-BP-13655YA

PATIENT
  Age: 79 Year
  Sex: Male

DRUGS (6)
  1. TAMSULOSIN HYDROCHLORIDE [Suspect]
     Indication: INCONTINENCE
     Route: 048
     Dates: start: 20050419, end: 20050510
  2. SENNA [Concomitant]
     Indication: CONSTIPATION
     Route: 065
  3. ENTACAPONE [Concomitant]
     Indication: PARKINSON'S DISEASE
     Route: 048
  4. BENDROFLUMETHIAZIDE [Concomitant]
     Indication: HYPERTENSION
     Route: 048
  5. BENDROFLUMETHIAZIDE [Concomitant]
     Indication: CEREBROVASCULAR ACCIDENT
  6. CO-BENELDOPA [Concomitant]
     Indication: PARKINSON'S DISEASE
     Route: 048

REACTIONS (1)
  - HYPERTENSION [None]
